FAERS Safety Report 10850137 (Version 4)
Quarter: 2015Q2

REPORT INFORMATION
  Report Type: Spontaneous
  Country: US (occurrence: US)
  Receive Date: 20150221
  Receipt Date: 20150513
  Transmission Date: 20150821
  Serious: No
  Sender: FDA-Public Use
  Company Number: US-UNITED THERAPEUTICS-UNT-2014-012289

PATIENT
  Age: 14 Year
  Sex: Female
  Weight: 59.86 kg

DRUGS (11)
  1. ORENITRAM [Suspect]
     Active Substance: TREPROSTINIL
     Dosage: UNK
     Route: 048
     Dates: start: 20150216
  2. ORENITRAM [Suspect]
     Active Substance: TREPROSTINIL
     Dosage: 2.75 MG, Q8H
     Route: 048
  3. ORENITRAM [Suspect]
     Active Substance: TREPROSTINIL
     Dosage: 1.25 MG, Q8H
     Route: 048
  4. LETAIRIS [Concomitant]
     Active Substance: AMBRISENTAN
     Indication: PRODUCT USED FOR UNKNOWN INDICATION
  5. ADCIRCA [Concomitant]
     Active Substance: TADALAFIL
     Indication: PRODUCT USED FOR UNKNOWN INDICATION
  6. ORENITRAM [Suspect]
     Active Substance: TREPROSTINIL
     Dosage: 1 MG, Q8H
     Route: 048
     Dates: start: 20141106
  7. ORENITRAM [Suspect]
     Active Substance: TREPROSTINIL
     Indication: PULMONARY HYPERTENSION
     Dosage: 1 MG, TID
     Route: 048
     Dates: start: 20141106
  8. ORENITRAM [Suspect]
     Active Substance: TREPROSTINIL
     Dosage: 1.5 MG, TID
     Route: 048
  9. ORENITRAM [Suspect]
     Active Substance: TREPROSTINIL
     Dosage: UNK
  10. ORENITRAM [Suspect]
     Active Substance: TREPROSTINIL
     Dosage: 1.5 MG, TID
     Route: 048
  11. REVATIO [Concomitant]
     Active Substance: SILDENAFIL CITRATE
     Indication: PRODUCT USED FOR UNKNOWN INDICATION

REACTIONS (15)
  - Fluid retention [Unknown]
  - Pain in extremity [Unknown]
  - Nasopharyngitis [Unknown]
  - Nasal congestion [Unknown]
  - Headache [Unknown]
  - Incorrect dosage administered [Unknown]
  - Weight increased [Unknown]
  - Tremor [Unknown]
  - Retching [Unknown]
  - Oedema peripheral [Unknown]
  - Nausea [Unknown]
  - Influenza [Unknown]
  - Rash [Unknown]
  - Flushing [Unknown]
  - Arthralgia [Unknown]

NARRATIVE: CASE EVENT DATE: 2014
